FAERS Safety Report 5149100-1 (Version None)
Quarter: 2006Q4

REPORT INFORMATION
  Report Type: 
  Country: None (occurrence: None)
  Receive Date: 20061113
  Receipt Date: 20060721
  Transmission Date: 20070319
  Serious: No
  Sender: FDA-Public Use
  Company Number: US-GLAXOSMITHKLINE-A0613121A

PATIENT
  Age: 47 Year
  Sex: Female

DRUGS (15)
  1. COREG [Suspect]
     Indication: DRUG USE FOR UNKNOWN INDICATION
     Dosage: 12.5MG PER DAY
     Route: 048
  2. SYNTHROID [Concomitant]
  3. LASIX [Concomitant]
  4. K-DUR 10 [Concomitant]
  5. DIOVAN [Concomitant]
  6. FOSAMAX [Concomitant]
  7. SINGULAIR [Concomitant]
  8. ZAROXOLYN [Concomitant]
  9. PREDNISONE TAB [Concomitant]
  10. ZANTAC [Concomitant]
  11. COUMADIN [Concomitant]
  12. STOOL SOFTENER [Concomitant]
  13. SOMA [Concomitant]
  14. XANAX [Concomitant]
  15. METHADONE HCL [Concomitant]

REACTIONS (1)
  - DYSPNOEA [None]
